FAERS Safety Report 7131370-1 (Version None)
Quarter: 2010Q4

REPORT INFORMATION
  Report Type: 
  Country: None (occurrence: None)
  Receive Date: 20101201
  Receipt Date: 20101117
  Transmission Date: 20110411
  Serious: Yes (Other)
  Sender: FDA-Public Use
  Company Number: GB-PURDUE-USA-2010-0055914

PATIENT
  Age: 43 Year
  Sex: Male

DRUGS (2)
  1. TRAMADOL HCL [Suspect]
     Indication: PRODUCT USED FOR UNKNOWN INDICATION
     Dosage: UNK MG, SEE TEXT
     Dates: end: 20101001
  2. TRAMADOL HCL [Suspect]
     Indication: PAIN
     Dosage: UNK
     Dates: start: 20090401, end: 20090601

REACTIONS (3)
  - APHAGIA [None]
  - CONFUSIONAL STATE [None]
  - NAUSEA [None]
